FAERS Safety Report 9911408 (Version 1)
Quarter: 2014Q1

REPORT INFORMATION
  Report Type: Spontaneous
  Country: US (occurrence: US)
  Receive Date: 20140219
  Receipt Date: 20140219
  Transmission Date: 20141002
  Serious: Yes (Other)
  Sender: FDA-Public Use
  Company Number: PHEH2014US003206

PATIENT
  Sex: Female

DRUGS (4)
  1. TRILEPTAL [Suspect]
     Dosage: UNK UKN, TAKING SINCE 17 YEARS
  2. IMITREX//SUMATRIPTAN [Concomitant]
     Dosage: UNK UKN, UNK
  3. EXCEDRIN MIGRAINE [Concomitant]
     Dosage: UNK UKN, UNK
  4. CORTICOSTEROIDS [Concomitant]
     Indication: MIGRAINE
     Dosage: UNK UKN, UNK

REACTIONS (1)
  - Convulsion [Unknown]
